FAERS Safety Report 17805177 (Version 2)
Quarter: 2022Q1

REPORT INFORMATION
  Report Type: Report from Study
  Country: US (occurrence: US)
  Receive Date: 20200520
  Receipt Date: 20220106
  Transmission Date: 20220423
  Serious: Yes (Other)
  Sender: FDA-Public Use
  Company Number: US-SHIRE-US202016786

PATIENT
  Sex: Female

DRUGS (6)
  1. PARATHYROID HORMONE [Suspect]
     Active Substance: PARATHYROID HORMONE
     Indication: Mineral supplementation
     Dosage: 75 MICROGRAM, QD
     Route: 058
     Dates: start: 20190615
  2. PARATHYROID HORMONE [Suspect]
     Active Substance: PARATHYROID HORMONE
     Indication: Mineral supplementation
     Dosage: 75 MICROGRAM, QD
     Route: 058
     Dates: start: 20190615
  3. PARATHYROID HORMONE [Suspect]
     Active Substance: PARATHYROID HORMONE
     Indication: Mineral supplementation
     Dosage: 75 MICROGRAM, QD
     Route: 058
     Dates: start: 20190615
  4. PARATHYROID HORMONE [Suspect]
     Active Substance: PARATHYROID HORMONE
     Indication: Vitamin supplementation
  5. PARATHYROID HORMONE [Suspect]
     Active Substance: PARATHYROID HORMONE
     Indication: Vitamin supplementation
  6. PARATHYROID HORMONE [Suspect]
     Active Substance: PARATHYROID HORMONE
     Indication: Vitamin supplementation

REACTIONS (4)
  - Blood calcium decreased [Recovered/Resolved]
  - Injection site irritation [Unknown]
  - Incorrect dose administered [Unknown]
  - Inappropriate schedule of product administration [Unknown]
